FAERS Safety Report 24776644 (Version 1)
Quarter: 2024Q4

REPORT INFORMATION
  Report Type: Spontaneous
  Country: SK (occurrence: SK)
  Receive Date: 20241226
  Receipt Date: 20241226
  Transmission Date: 20250115
  Serious: Yes (Hospitalization, Other)
  Sender: AMGEN
  Company Number: SK-AMGEN-SVKSP2024250709

PATIENT
  Sex: Female

DRUGS (3)
  1. XGEVA [Suspect]
     Active Substance: DENOSUMAB
     Indication: Metastases to bone
     Dosage: UNK
     Route: 065
     Dates: start: 2019
  2. SUNITINIB [Concomitant]
     Active Substance: SUNITINIB
  3. ZOLEDRONIC ACID [Concomitant]
     Active Substance: ZOLEDRONIC ACID

REACTIONS (7)
  - Cardiac failure chronic [Unknown]
  - Dyspnoea [Unknown]
  - Oedema [Unknown]
  - Breast cancer metastatic [Unknown]
  - Renal cell carcinoma [Unknown]
  - Pulmonary embolism [Unknown]
  - Fibrosis [Unknown]

NARRATIVE: CASE EVENT DATE: 20200101
